FAERS Safety Report 9890183 (Version 1)
Quarter: 2014Q1

REPORT INFORMATION
  Report Type: Spontaneous
  Country: US (occurrence: US)
  Receive Date: 20140212
  Receipt Date: 20140212
  Transmission Date: 20141002
  Serious: No
  Sender: FDA-Public Use
  Company Number: US-BIOGENIDEC-2014BI011689

PATIENT
  Sex: Male

DRUGS (9)
  1. TECFIDERA [Suspect]
     Indication: MULTIPLE SCLEROSIS
     Route: 048
     Dates: start: 20131211, end: 20131217
  2. TECFIDERA [Suspect]
     Indication: MULTIPLE SCLEROSIS
     Route: 048
     Dates: start: 20131218
  3. PLAVIX [Concomitant]
  4. CRESTOR [Concomitant]
  5. ATENOLOL [Concomitant]
  6. PRILOSEC [Concomitant]
  7. NEURONTIN [Concomitant]
  8. VITAMIN D [Concomitant]
  9. ASPIRIN [Concomitant]

REACTIONS (1)
  - Adverse event [Unknown]
